FAERS Safety Report 17771428 (Version 1)
Quarter: 2020Q2

REPORT INFORMATION
  Report Type: Report from Study
  Country: IT (occurrence: IT)
  Receive Date: 20200512
  Receipt Date: 20200512
  Transmission Date: 20200714
  Serious: Yes (Other)
  Sender: FDA-Public Use
  Company Number: IT-ROCHE-2594988

PATIENT

DRUGS (9)
  1. TOCILIZUMAB. [Suspect]
     Active Substance: TOCILIZUMAB
     Indication: ARTHRITIS
     Route: 065
  2. SECUKINUMAB. [Suspect]
     Active Substance: SECUKINUMAB
     Indication: ARTHRITIS
     Route: 065
  3. USTEKINUMAB [Suspect]
     Active Substance: USTEKINUMAB
     Indication: ARTHRITIS
     Route: 065
  4. RITUXIMAB. [Suspect]
     Active Substance: RITUXIMAB
     Indication: ARTHRITIS
     Route: 065
  5. INFLIXIMAB [Suspect]
     Active Substance: INFLIXIMAB
     Indication: ARTHRITIS
     Route: 065
  6. ABATACEPT [Suspect]
     Active Substance: ABATACEPT
     Indication: ARTHRITIS
     Route: 065
  7. GOLIMUMAB [Suspect]
     Active Substance: GOLIMUMAB
     Indication: ARTHRITIS
     Route: 065
  8. ADALIMUMAB [Suspect]
     Active Substance: ADALIMUMAB
     Indication: ARTHRITIS
     Route: 065
  9. ETANERCEPT [Suspect]
     Active Substance: ETANERCEPT
     Indication: ARTHRITIS
     Route: 065

REACTIONS (20)
  - Influenza like illness [Unknown]
  - Laryngeal pain [Unknown]
  - Hypertransaminasaemia [Unknown]
  - Osteomyelitis [Unknown]
  - Oropharyngeal pain [Unknown]
  - Arthritis [Unknown]
  - Condition aggravated [Unknown]
  - Swelling [Unknown]
  - Dysphonia [Unknown]
  - Lymphocytosis [Unknown]
  - Treatment failure [Unknown]
  - Neutropenia [Unknown]
  - Leukopenia [Unknown]
  - Urticaria [Unknown]
  - Cough [Unknown]
  - Oral pain [Unknown]
  - Administration site pruritus [Unknown]
  - Injection site pain [Unknown]
  - Rash [Unknown]
  - Paronychia [Unknown]
